FAERS Safety Report 5633924-8 (Version None)
Quarter: 2008Q1

REPORT INFORMATION
  Report Type: 
  Country: None (occurrence: None)
  Receive Date: 20080221
  Receipt Date: 20080124
  Transmission Date: 20080703
  Serious: No
  Sender: FDA-Public Use
  Company Number: US-BOEHRINGER INGELHEIM GMBH, GERMANY-2008-BP-01212BP

PATIENT
  Sex: Male

DRUGS (5)
  1. SPIRIVA [Suspect]
     Indication: CHRONIC OBSTRUCTIVE PULMONARY DISEASE
     Route: 048
     Dates: start: 20070801, end: 20080103
  2. TAGAMET [Concomitant]
  3. ALLOPURINOL [Concomitant]
  4. PROPRANOLOL [Concomitant]
  5. MUCINEX [Concomitant]

REACTIONS (1)
  - DIPLOPIA [None]
